FAERS Safety Report 6579126-2 (Version None)
Quarter: 2010Q1

REPORT INFORMATION
  Report Type: 
  Country: None (occurrence: None)
  Receive Date: 20100212
  Receipt Date: 20100201
  Transmission Date: 20100710
  Serious: Yes (Death)
  Sender: FDA-Public Use
  Company Number: JP-NOVOPROD-301590

PATIENT
  Sex: Male
  Weight: 64 kg

DRUGS (11)
  1. LEVEMIR [Suspect]
     Indication: TYPE 2 DIABETES MELLITUS
     Dosage: /SC
     Route: 058
     Dates: start: 20081107
  2. NOVORAPID CHU FLEXPEN [Concomitant]
     Dosage: 42(12-16-14)IU/SC
     Dates: start: 20080418, end: 20091104
  3. METFORMIN HYDROCHLORIDE [Concomitant]
     Dosage: 750MG/PO
     Route: 048
     Dates: start: 20050121, end: 20091104
  4. CALBLOCK [Concomitant]
     Dosage: 16MG/PO
     Dates: start: 20081003, end: 20091104
  5. LIPITOR [Concomitant]
     Dosage: 5MG/PO
     Dates: start: 20090213, end: 20091104
  6. ASPIRIN [Concomitant]
     Dosage: 100MG/PO
     Dates: start: 20060110, end: 20091104
  7. CORTRIL                            /00028601/ [Concomitant]
     Dosage: 10MG/PO
     Dates: start: 20080418, end: 20091104
  8. LANSOPRAZOL [Concomitant]
     Dosage: 15MG/PO
     Dates: start: 20080418, end: 20091104
  9. ALFACALCIDOL [Concomitant]
     Dosage: 0.25MICRO-G
     Dates: start: 20031022, end: 20091104
  10. SALMETEROL/FLUTICASONPROPIONAAT [Concomitant]
     Dosage: 250/INHALATION
     Dates: start: 20090527, end: 20091104
  11. LENDEM [Concomitant]
     Dosage: 0.25MG/PO
     Dates: start: 20091008, end: 20091104

REACTIONS (1)
  - SUDDEN DEATH [None]
